FAERS Safety Report 17125042 (Version 1)
Quarter: 2019Q4

REPORT INFORMATION
  Report Type: Spontaneous
  Country: CA (occurrence: CA)
  Receive Date: 20191206
  Receipt Date: 20191206
  Transmission Date: 20200122
  Serious: Yes (Other)
  Sender: FDA-Public Use
  Company Number: CA-B.BRAUN MEDICAL INC.-2077568

PATIENT
  Age: 36 Year
  Sex: Female
  Weight: 41 kg

DRUGS (7)
  1. IBUPROFEN. [Concomitant]
     Active Substance: IBUPROFEN
  2. SODIUM CHLORIDE INJECTION USP 0264-7800-09 [Suspect]
     Active Substance: SODIUM CHLORIDE
     Indication: FLUID REPLACEMENT
     Route: 042
  3. PROPOFOL. [Suspect]
     Active Substance: PROPOFOL
     Route: 065
  4. SODIUM CHLORIDE INJECTION USP 0264-7800-09 [Suspect]
     Active Substance: SODIUM CHLORIDE
     Indication: HYSTEROSCOPY
     Route: 042
  5. ACETAMINOPHEN. [Concomitant]
     Active Substance: ACETAMINOPHEN
  6. SUFENTANIL CITRATE SANDOZ [Concomitant]
     Active Substance: SUFENTANIL CITRATE
  7. SODIUM CHLORIDE. [Suspect]
     Active Substance: SODIUM CHLORIDE
     Route: 015

REACTIONS (5)
  - Metabolic disorder [None]
  - Acidosis hyperchloraemic [None]
  - Haemodilution [None]
  - Arrhythmia [None]
  - Hypokalaemia [None]
